FAERS Safety Report 11770012 (Version 1)
Quarter: 2015Q4

REPORT INFORMATION
  Report Type: Other
  Country: DE (occurrence: DE)
  Receive Date: 20151123
  Receipt Date: 20151123
  Transmission Date: 20160304
  Serious: Yes (Hospitalization, Other)
  Sender: FDA-Public Use
  Company Number: DE-SHIRE-DE-002002

PATIENT
  Age: 38 Year
  Sex: Female
  Weight: 36.1 kg

DRUGS (12)
  1. REVESTIVE [Suspect]
     Active Substance: TEDUGLUTIDE
     Indication: SHORT-BOWEL SYNDROME
     Dosage: 0.2 ML, 1X/DAY:QD
     Route: 058
     Dates: start: 20150331
  2. REVESTIVE [Suspect]
     Active Substance: TEDUGLUTIDE
     Indication: CROHN^S DISEASE
     Dosage: 0.2 ML, 1X/DAY:QD
     Route: 058
     Dates: start: 20150331
  3. MERONEM [Concomitant]
     Active Substance: MEROPENEM
     Indication: SEPSIS
     Dosage: UNK UNK, 1X/DAY:QD
  4. ECALTA [Concomitant]
     Active Substance: ANIDULAFUNGIN
     Indication: SEPSIS
     Dosage: UNK UNK, 1X/DAY:QD
  5. HUMIRA [Concomitant]
     Active Substance: ADALIMUMAB
     Indication: PRODUCT USED FOR UNKNOWN INDICATION
     Dosage: DF
  6. ASS 100 [Concomitant]
     Active Substance: ASPIRIN
     Indication: HYPERCOAGULATION
     Dosage: UNK UNK, 1X/DAY:QD
  7. CLEXANE [Concomitant]
     Active Substance: ENOXAPARIN SODIUM
     Indication: HYPERCOAGULATION
     Dosage: UNK UNK, 1X/DAY:QD
  8. TRAMAL [Concomitant]
     Active Substance: TRAMADOL
     Indication: EPILEPSY
     Dosage: UNK UNK, 1X/DAY:QD
  9. BONIVA [Concomitant]
     Active Substance: IBANDRONATE SODIUM
     Indication: PRODUCT USED FOR UNKNOWN INDICATION
     Dosage: DF
  10. PREDNISOLON [Concomitant]
     Active Substance: PREDNISOLONE
     Indication: PRODUCT USED FOR UNKNOWN INDICATION
     Dosage: DF
  11. KEPPRA [Concomitant]
     Active Substance: LEVETIRACETAM
     Indication: SEPSIS
     Dosage: UNK UNK, 1X/DAY:QD
  12. SANDOSTATIN [Concomitant]
     Active Substance: OCTREOTIDE ACETATE
     Indication: PRODUCT USED FOR UNKNOWN INDICATION
     Dosage: DF

REACTIONS (12)
  - Vitamin K deficiency [Not Recovered/Not Resolved]
  - Inflammation [Not Recovered/Not Resolved]
  - Haemorrhage [Unknown]
  - Abdominal pain lower [Not Recovered/Not Resolved]
  - Catheter site infection [Not Recovered/Not Resolved]
  - Pneumonia [Not Recovered/Not Resolved]
  - Sepsis [Not Recovered/Not Resolved]
  - Eye swelling [Not Recovered/Not Resolved]
  - Melaena [Not Recovered/Not Resolved]
  - Crohn^s disease [Not Recovered/Not Resolved]
  - Muscle rupture [Not Recovered/Not Resolved]
  - Overdose [Unknown]

NARRATIVE: CASE EVENT DATE: 20150523
